FAERS Safety Report 7966198-3 (Version None)
Quarter: 2011Q4

REPORT INFORMATION
  Report Type: 
  Country: None (occurrence: None)
  Receive Date: 20111208
  Receipt Date: 20111130
  Transmission Date: 20120403
  Serious: Yes (Other)
  Sender: FDA-Public Use
  Company Number: PHHY2011BR105999

PATIENT
  Sex: Male

DRUGS (1)
  1. RITALIN LA [Suspect]
     Dosage: 20 MG, UNK
     Route: 048

REACTIONS (1)
  - REBOUND EFFECT [None]
